FAERS Safety Report 4679409-7 (Version None)
Quarter: 2005Q2

REPORT INFORMATION
  Report Type: 
  Country: None (occurrence: None)
  Receive Date: 20050531
  Receipt Date: 20050517
  Transmission Date: 20051028
  Serious: Yes (Other)
  Sender: FDA-Public Use
  Company Number: B0359587A

PATIENT
  Sex: Female

DRUGS (4)
  1. PAXIL [Suspect]
     Indication: DEPRESSION
  2. PARACETAMOL [Concomitant]
  3. DIAZEPAM [Concomitant]
  4. DIHYDROCODEINE [Concomitant]

REACTIONS (6)
  - CHRONIC FATIGUE SYNDROME [None]
  - COMPLETED SUICIDE [None]
  - DRUG WITHDRAWAL SYNDROME [None]
  - HYPERTENSION [None]
  - MULTIPLE DRUG OVERDOSE [None]
  - SLEEP APNOEA SYNDROME [None]
